FAERS Safety Report 6497856-8 (Version None)
Quarter: 2009Q4

REPORT INFORMATION
  Report Type: 
  Country: None (occurrence: None)
  Receive Date: 20091215
  Receipt Date: 20091203
  Transmission Date: 20100525
  Serious: Yes (Other)
  Sender: FDA-Public Use
  Company Number: JP-PFIZER INC-2009302406

PATIENT
  Age: 49 Year
  Sex: Female
  Weight: 66 kg

DRUGS (4)
  1. SUNITINIB MALATE [Suspect]
     Indication: RENAL CELL CARCINOMA
     Dosage: 50 MG, 1X/DAY
     Route: 048
     Dates: start: 20090707
  2. URSO 250 [Concomitant]
     Dosage: 300 MG, 3X/DAY
     Route: 048
     Dates: start: 20090722
  3. PRIMPERAN TAB [Concomitant]
     Dosage: UNK
     Route: 048
     Dates: start: 20090812
  4. BLOPRESS [Concomitant]
     Dosage: UNK
     Route: 048
     Dates: start: 20090824

REACTIONS (3)
  - MALAISE [None]
  - NAUSEA [None]
  - PLATELET COUNT DECREASED [None]
